FAERS Safety Report 8007784-4 (Version None)
Quarter: 2011Q4

REPORT INFORMATION
  Report Type: 
  Country: None (occurrence: None)
  Receive Date: 20111227
  Receipt Date: 20110713
  Transmission Date: 20120403
  Serious: No
  Sender: FDA-Public Use
  Company Number: US-ABBOTT-11P-163-0838760-00

PATIENT
  Sex: Male
  Weight: 99.88 kg

DRUGS (9)
  1. ASPIRIN [Concomitant]
     Indication: ATRIAL FIBRILLATION
     Route: 048
     Dates: start: 20090101
  2. PREDNISONE [Concomitant]
     Indication: OSTEOARTHRITIS
     Route: 048
  3. COREG [Concomitant]
     Indication: CARDIAC DISORDER
     Route: 048
  4. WARFARIN [Concomitant]
     Indication: ATRIAL FIBRILLATION
     Route: 048
     Dates: start: 20090101
  5. LUPRON DEPOT [Suspect]
     Indication: PROSTATE CANCER
     Route: 030
     Dates: start: 20110201, end: 20110201
  6. RAMIPRIL [Concomitant]
     Indication: HYPERTENSION
     Route: 048
  7. LUPRON DEPOT [Suspect]
     Indication: PROSTATE CANCER
     Route: 030
     Dates: start: 20110301
  8. SIMAVASTATIN [Concomitant]
     Indication: BLOOD CHOLESTEROL INCREASED
     Route: 048
  9. ACETAMINOPHEN [Concomitant]
     Indication: OSTEOARTHRITIS
     Dosage: 1 EVERY 6 HRS AS NEEDED
     Route: 048

REACTIONS (3)
  - FATIGUE [None]
  - HYPERHIDROSIS [None]
  - FEELING HOT [None]
